FAERS Safety Report 10078394 (Version 1)
Quarter: 2014Q2

REPORT INFORMATION
  Report Type: Spontaneous
  Country: US (occurrence: None)
  Receive Date: 20140401
  Receipt Date: 20140401
  Transmission Date: 20141212
  Serious: Yes (Death)
  Sender: FDA-Public Use
  Company Number: AEGR000360

PATIENT
  Age: 63 Year
  Sex: Male
  Weight: 112 kg

DRUGS (6)
  1. JUXTAPID [Suspect]
     Indication: PRODUCT USED FOR UNKNOWN INDICATION
     Route: 048
     Dates: start: 201309
  2. ZEITA (EZETIMIBE) [Concomitant]
  3. METOPROLOL (METOPROLOL) [Concomitant]
  4. CRESTOR (ROSUVASTATIN CALCIUM) [Concomitant]
  5. PERCOCET )OXYCODONE HYDROCHLORIDE, PARACETAMOL) [Concomitant]
  6. BABY ASPIRIN (ACETYLSALICYLIC ACID) [Concomitant]

REACTIONS (1)
  - Cardio-respiratory arrest [None]
